FAERS Safety Report 23077896 (Version 1)
Quarter: 2023Q4

REPORT INFORMATION
  Report Type: Spontaneous
  Country: IE (occurrence: IE)
  Receive Date: 20231018
  Receipt Date: 20231018
  Transmission Date: 20240109
  Serious: Yes (Other)
  Sender: FDA-Public Use
  Company Number: IE-GlaxoSmithKline-A0633800A

PATIENT
  Sex: Male

DRUGS (3)
  1. ACETAMINOPHEN\PHENYLEPHRINE [Suspect]
     Active Substance: ACETAMINOPHEN\PHENYLEPHRINE
     Indication: Product used for unknown indication
     Route: 065
  2. ACETAMINOPHEN\CAFFEINE\CODEINE [Suspect]
     Active Substance: ACETAMINOPHEN\CAFFEINE\CODEINE
     Indication: Product used for unknown indication
     Route: 065
  3. BETAHISTINE [Suspect]
     Active Substance: BETAHISTINE
     Indication: Product used for unknown indication
     Route: 065

REACTIONS (3)
  - Illness [Unknown]
  - Abdominal pain upper [Unknown]
  - Intentional overdose [Unknown]
